FAERS Safety Report 5402067-0 (Version None)
Quarter: 2007Q3

REPORT INFORMATION
  Report Type: 
  Country: None (occurrence: None)
  Receive Date: 20070727
  Receipt Date: 20070716
  Transmission Date: 20080115
  Serious: Yes (Other)
  Sender: FDA-Public Use
  Company Number: 07-213

PATIENT
  Sex: Female

DRUGS (1)
  1. ERGOCALCIFEROL [Suspect]
     Indication: OSTEOPOROSIS
     Dosage: 1 CAPSULE WEEKLY, ORAL
     Route: 048
     Dates: start: 20060501, end: 20070301

REACTIONS (2)
  - BACK PAIN [None]
  - NEPHROLITHIASIS [None]
